FAERS Safety Report 9831419 (Version 1)
Quarter: 2014Q1

REPORT INFORMATION
  Report Type: Spontaneous
  Country: US (occurrence: US)
  Receive Date: 20140121
  Receipt Date: 20140121
  Transmission Date: 20141002
  Serious: Yes (Hospitalization, Other)
  Sender: FDA-Public Use
  Company Number: US-BRISTOL-MYERS SQUIBB COMPANY-20008371

PATIENT
  Age: 64 Year
  Sex: Female
  Weight: 79.4 kg

DRUGS (16)
  1. COUMADIN [Suspect]
     Dosage: ONGOING
     Dates: start: 201211
  2. AMPYRA [Suspect]
     Indication: MULTIPLE SCLEROSIS
     Route: 048
     Dates: start: 20061205, end: 20130930
  3. IRON [Concomitant]
     Dosage: TABS
  4. VOLTAREN [Concomitant]
     Route: 047
  5. PROTONIX [Concomitant]
     Dosage: TABS
  6. FLEXERIL [Concomitant]
     Dosage: TABS
  7. REBIF [Concomitant]
     Dosage: 44.0/0.5
  8. ALTACE [Concomitant]
     Dosage: TABS
  9. ASPIRIN [Concomitant]
     Dosage: BUFFERED,TABS
  10. COREG [Concomitant]
     Dosage: TABS
  11. LASIX [Concomitant]
     Dosage: TABS
  12. CENTRUM SILVER [Concomitant]
     Dosage: TABS
  13. CALTRATE [Concomitant]
     Dosage: TABS
  14. SALMON OIL [Concomitant]
     Dosage: CAPSULE
  15. VESICARE [Concomitant]
     Dosage: TABS
  16. ALPRAZOLAM [Concomitant]

REACTIONS (10)
  - Grand mal convulsion [Recovered/Resolved]
  - Cerebrovascular accident [Recovering/Resolving]
  - Cardiac failure congestive [Recovered/Resolved]
  - Cardiomyopathy [Unknown]
  - Ankle fracture [Unknown]
  - Contusion [Unknown]
  - Sleep disorder [Unknown]
  - Panic attack [Unknown]
  - Feeling hot [Unknown]
  - Rotator cuff syndrome [Unknown]
